FAERS Safety Report 10273333 (Version 3)
Quarter: 2014Q3

REPORT INFORMATION
  Report Type: Spontaneous
  Country: SE (occurrence: SE)
  Receive Date: 20140702
  Receipt Date: 20140728
  Transmission Date: 20150326
  Serious: Yes (Other)
  Sender: FDA-Public Use
  Company Number: SE-JNJFOC-20140700196

PATIENT
  Age: 75 Year
  Sex: Female

DRUGS (7)
  1. LASIX [Concomitant]
     Active Substance: FUROSEMIDE
  2. DIOVAN [Concomitant]
     Active Substance: VALSARTAN
  3. OMEPRAZOLE. [Concomitant]
     Active Substance: OMEPRAZOLE
  4. KALEORID [Concomitant]
     Active Substance: POTASSIUM CHLORIDE
  5. OLYSIO [Suspect]
     Active Substance: SIMEPREVIR
     Indication: CHRONIC HEPATITIS C
     Route: 065
     Dates: start: 20140528
  6. SELOKEEN [Concomitant]
     Active Substance: METOPROLOL
  7. SOVALDI [Concomitant]
     Active Substance: SOFOSBUVIR

REACTIONS (3)
  - Skin necrosis [Recovered/Resolved]
  - Photosensitivity reaction [Recovered/Resolved]
  - Solar dermatitis [Recovered/Resolved]

NARRATIVE: CASE EVENT DATE: 20140623
